FAERS Safety Report 15374991 (Version 2)
Quarter: 2018Q3

REPORT INFORMATION
  Report Type: Spontaneous
  Country: US (occurrence: US)
  Receive Date: 20180912
  Receipt Date: 20180926
  Transmission Date: 20181010
  Serious: Yes (Other)
  Sender: FDA-Public Use
  Company Number: US-SAOL THERAPEUTICS-2018SAO00977

PATIENT
  Age: 35 Year
  Sex: Male

DRUGS (2)
  1. LIORESAL [Suspect]
     Active Substance: BACLOFEN
     Dosage: 1275 ?G, \DAY
  2. LIORESAL [Suspect]
     Active Substance: BACLOFEN
     Dosage: 1200 ?G, \DAY
     Route: 037

REACTIONS (3)
  - Device failure [Recovered/Resolved]
  - Hypotonia [Recovered/Resolved]
  - Blood creatine phosphokinase increased [Recovered/Resolved]

NARRATIVE: CASE EVENT DATE: 20180831
